FAERS Safety Report 4274526-8 (Version None)
Quarter: 2004Q1

REPORT INFORMATION
  Report Type: 
  Country: None (occurrence: None)
  Receive Date: 20040120
  Receipt Date: 20030911
  Transmission Date: 20041129
  Serious: Yes (Hospitalization)
  Sender: FDA-Public Use
  Company Number: FR-ROCHE-346751

PATIENT
  Age: 6 Year
  Sex: Female

DRUGS (8)
  1. CEFTRIAXONE [Suspect]
     Route: 042
     Dates: start: 20020123, end: 20020204
  2. TIBERAL [Suspect]
     Route: 042
     Dates: start: 20020125, end: 20020204
  3. ROCEPHIN [Concomitant]
     Route: 065
  4. ORBENIN CAP [Concomitant]
     Dosage: REPORTED TO BE TAKEN IN FOUR TIMES.
     Route: 042
     Dates: start: 20020123, end: 20020125
  5. TARGOCID [Concomitant]
     Route: 065
  6. NALBUPHINE [Concomitant]
     Route: 042
     Dates: start: 20020123, end: 20020128
  7. ACETAMINOPHEN [Concomitant]
     Indication: DRUG USE FOR UNKNOWN INDICATION
     Dosage: DRUG NAME REPORTED AS PROPARACETAMOL. REPORTED TO BE TAKEN IN FOUR TIMES.
     Route: 042
     Dates: start: 20020123, end: 20020128
  8. NETILMICIN SULFATE [Concomitant]
     Route: 042
     Dates: start: 20020123, end: 20020201

REACTIONS (9)
  - BLISTER [None]
  - CYTOLYTIC HEPATITIS [None]
  - ECZEMA [None]
  - EOSINOPHILIA [None]
  - ERYTHEMA [None]
  - LYMPHADENOPATHY [None]
  - PRURIGO [None]
  - RASH MACULO-PAPULAR [None]
  - TOXIC SKIN ERUPTION [None]
